FAERS Safety Report 12072902 (Version 3)
Quarter: 2016Q3

REPORT INFORMATION
  Report Type: Spontaneous
  Country: US (occurrence: US)
  Receive Date: 20160212
  Receipt Date: 20160706
  Transmission Date: 20161109
  Serious: Yes (Hospitalization, Other)
  Sender: FDA-Public Use
  Company Number: US-PFIZER INC-2016077846

PATIENT
  Age: 86 Year
  Sex: Female
  Weight: 64 kg

DRUGS (12)
  1. FERROUS SULFATE. [Concomitant]
     Active Substance: FERROUS SULFATE
     Indication: ABNORMAL FAECES
     Dosage: 325 MG, 1X/DAY
  2. INSULIN [Concomitant]
     Active Substance: INSULIN NOS
     Indication: DIABETES MELLITUS
     Dosage: UNK
  3. OMEPRAZOLE. [Concomitant]
     Active Substance: OMEPRAZOLE
     Indication: GASTROINTESTINAL DISORDER
     Dosage: 20 MG, DAILY
  4. REVATIO [Suspect]
     Active Substance: SILDENAFIL CITRATE
     Indication: LUNG DISORDER
     Dosage: 20 MG, 2X/DAY
  5. POTASSIUM CHLORIDE. [Concomitant]
     Active Substance: POTASSIUM CHLORIDE
     Indication: BLOOD POTASSIUM DECREASED
     Dosage: 20 MEQ, 2X/DAY
  6. ALBUTEROL-IPRATROPIUM [Concomitant]
     Indication: DYSPNOEA
     Dosage: ALBUTEROL: 0.5MG-IPRATROPIUM: 3MG (2.5MG BASE/3ML) 3-4 PUFFS DAILY
  7. PRILOSEC [Concomitant]
     Active Substance: OMEPRAZOLE MAGNESIUM
     Dosage: UNK
  8. DILTIAZEM. [Concomitant]
     Active Substance: DILTIAZEM
     Indication: CARDIAC DISORDER
     Dosage: 300 MG, DAILY (AT BEDTIME)
  9. REVATIO [Suspect]
     Active Substance: SILDENAFIL CITRATE
     Indication: DYSPNOEA
     Dosage: ONE TABLET DAILY
  10. BUMETANIDE. [Concomitant]
     Active Substance: BUMETANIDE
     Indication: DIURETIC THERAPY
     Dosage: 1 MG, 2X/DAY
  11. VITAMIN B12 [Concomitant]
     Active Substance: CYANOCOBALAMIN
     Dosage: 1000 UG, 1X/DAY
     Route: 048
  12. MAGNESIUM OXIDE. [Concomitant]
     Active Substance: MAGNESIUM OXIDE
     Dosage: 400 MG, 2X/DAY

REACTIONS (6)
  - Intentional product use issue [Unknown]
  - Dyspnoea [Unknown]
  - Bedridden [Unknown]
  - Fatigue [Unknown]
  - Cough [Not Recovered/Not Resolved]
  - Product use issue [Unknown]

NARRATIVE: CASE EVENT DATE: 2016
